FAERS Safety Report 4748906-8 (Version None)
Quarter: 2005Q3

REPORT INFORMATION
  Report Type: 
  Country: None (occurrence: None)
  Receive Date: 20050819
  Receipt Date: 20050809
  Transmission Date: 20060218
  Serious: Yes (Hospitalization)
  Sender: FDA-Public Use
  Company Number: 2005AP04335

PATIENT
  Age: 67 Year
  Sex: Male

DRUGS (4)
  1. SEROQUEL [Suspect]
     Indication: SCHIZOPHRENIA
     Route: 048
     Dates: start: 20050101, end: 20050723
  2. SILECE [Concomitant]
     Route: 048
     Dates: end: 20050723
  3. PROMETHAZINE HCL [Concomitant]
     Route: 048
     Dates: end: 20050723
  4. LIMAS [Concomitant]
     Route: 048
     Dates: end: 20050723

REACTIONS (3)
  - AGRANULOCYTOSIS [None]
  - DEHYDRATION [None]
  - PYREXIA [None]
